FAERS Safety Report 6227783-2 (Version None)
Quarter: 2009Q2

REPORT INFORMATION
  Report Type: 
  Country: None (occurrence: None)
  Receive Date: 20090612
  Receipt Date: 20090602
  Transmission Date: 20091009
  Serious: Yes (Hospitalization, Other)
  Sender: FDA-Public Use
  Company Number: PHHY2009FR21618

PATIENT
  Age: 71 Year
  Sex: Male

DRUGS (1)
  1. LAMISIL [Suspect]
     Indication: FUNGAL INFECTION
     Dosage: 250 MG/DAY

REACTIONS (3)
  - CHRONIC MYELOMONOCYTIC LEUKAEMIA [None]
  - MOUTH HAEMORRHAGE [None]
  - THROMBOCYTOPENIA [None]
